FAERS Safety Report 11772762 (Version 12)
Quarter: 2017Q4

REPORT INFORMATION
  Report Type: Report from Study
  Country: PA (occurrence: PA)
  Receive Date: 20151124
  Receipt Date: 20171208
  Transmission Date: 20180320
  Serious: Yes (Other)
  Sender: FDA-Public Use
  Company Number: PHHY2015PA140405

PATIENT
  Sex: Female
  Weight: 76.19 kg

DRUGS (9)
  1. MAGNESIUM CITRATE. [Concomitant]
     Active Substance: MAGNESIUM CITRATE
     Indication: DEMYELINATION
     Dosage: UNK
     Route: 065
  2. MAGNESIUM CITRATE. [Concomitant]
     Active Substance: MAGNESIUM CITRATE
     Indication: NECK PAIN
  3. CLONAZEPAM. [Concomitant]
     Active Substance: CLONAZEPAM
     Indication: PRODUCT USED FOR UNKNOWN INDICATION
     Dosage: UNK
     Route: 065
  4. GILENYA [Suspect]
     Active Substance: FINGOLIMOD HYDROCHLORIDE
     Indication: MULTIPLE SCLEROSIS
     Dosage: 0.5 MG, QD (AT 9 AM)
     Route: 065
     Dates: start: 20150706
  5. VITAMINS NOS [Concomitant]
     Active Substance: VITAMINS
     Indication: PRODUCT USED FOR UNKNOWN INDICATION
     Dosage: UNK
     Route: 065
  6. RIVOTRIL [Concomitant]
     Active Substance: CLONAZEPAM
     Indication: PRODUCT USED FOR UNKNOWN INDICATION
     Route: 065
  7. MAGNESIUM CITRATE. [Concomitant]
     Active Substance: MAGNESIUM CITRATE
     Indication: MUSCULOSKELETAL STIFFNESS
  8. AMANTADINE. [Concomitant]
     Active Substance: AMANTADINE HYDROCHLORIDE
     Indication: PRODUCT USED FOR UNKNOWN INDICATION
     Dosage: UNK
     Route: 065
  9. PROZAC [Concomitant]
     Active Substance: FLUOXETINE HYDROCHLORIDE
     Indication: PRODUCT USED FOR UNKNOWN INDICATION
     Dosage: UNK
     Route: 065

REACTIONS (20)
  - Central nervous system lesion [Recovered/Resolved]
  - Malaise [Unknown]
  - Spinal pain [Unknown]
  - Intervertebral disc protrusion [Unknown]
  - Feeling abnormal [Unknown]
  - Back pain [Unknown]
  - Hypoaesthesia [Unknown]
  - Musculoskeletal stiffness [Unknown]
  - Gait disturbance [Unknown]
  - Muscular weakness [Unknown]
  - Dysstasia [Unknown]
  - Hypertension [Unknown]
  - Intervertebral disc degeneration [Unknown]
  - Nausea [Unknown]
  - Cerebral atrophy [Unknown]
  - Hypotension [Not Recovered/Not Resolved]
  - Bone decalcification [Unknown]
  - Lordosis [Unknown]
  - Incontinence [Unknown]
  - Neck pain [Not Recovered/Not Resolved]
